FAERS Safety Report 7273172-1 (Version None)
Quarter: 2011Q1

REPORT INFORMATION
  Report Type: 
  Country: None (occurrence: None)
  Receive Date: 20110203
  Receipt Date: 20101029
  Transmission Date: 20110831
  Serious: No
  Sender: FDA-Public Use
  Company Number: US-ABBOTT-10P-163-0682749-00

PATIENT
  Sex: Female
  Weight: 70.824 kg

DRUGS (3)
  1. SYNTHROID [Suspect]
     Dates: end: 20101029
  2. BENEFIBER [Suspect]
     Indication: CONSTIPATION
     Dosage: 1.5 TSP DAILY
     Dates: start: 20100601
  3. SYNTHROID [Suspect]
     Indication: AUTOIMMUNE THYROIDITIS
     Dates: start: 20101029

REACTIONS (1)
  - BLOOD THYROID STIMULATING HORMONE ABNORMAL [None]
